FAERS Safety Report 6221918-3 (Version None)
Quarter: 2009Q2

REPORT INFORMATION
  Report Type: 
  Country: None (occurrence: None)
  Receive Date: 20090611
  Receipt Date: 20070516
  Transmission Date: 20091009
  Serious: Yes (Other)
  Sender: FDA-Public Use
  Company Number: US-ASTRAZENECA-2006UW24438

PATIENT
  Age: 16778 Day
  Sex: Female
  Weight: 131.5 kg

DRUGS (18)
  1. SEROQUEL [Suspect]
     Indication: PSYCHOTIC DISORDER
     Route: 048
     Dates: start: 20000101, end: 20061101
  2. SEROQUEL [Suspect]
     Indication: POST-TRAUMATIC STRESS DISORDER
     Route: 048
     Dates: start: 20000101, end: 20061101
  3. SEROQUEL [Suspect]
     Indication: ANXIETY
     Route: 048
     Dates: start: 20000101, end: 20061101
  4. SEROQUEL [Suspect]
     Indication: SLEEP DISORDER
     Route: 048
     Dates: start: 20000101, end: 20061101
  5. SEROQUEL [Suspect]
     Dosage: 25 MG TO 400 MG, FLUCTUATING
     Route: 048
     Dates: start: 20000711, end: 20061108
  6. SEROQUEL [Suspect]
     Dosage: 25 MG TO 400 MG, FLUCTUATING
     Route: 048
     Dates: start: 20000711, end: 20061108
  7. SEROQUEL [Suspect]
     Dosage: 25 MG TO 400 MG, FLUCTUATING
     Route: 048
     Dates: start: 20000711, end: 20061108
  8. SEROQUEL [Suspect]
     Dosage: 25 MG TO 400 MG, FLUCTUATING
     Route: 048
     Dates: start: 20000711, end: 20061108
  9. ZYPREXA [Suspect]
     Dates: start: 19990101, end: 20020101
  10. ZYPREXA [Suspect]
     Dosage: 2.5 MG TO 7.5 MG, FLUCTUATING
     Dates: start: 19980928, end: 20010221
  11. ABILIFY [Concomitant]
  12. GEODON [Concomitant]
  13. RISPERDAL [Concomitant]
  14. STELAZINE [Concomitant]
  15. WELLBUTRIN [Concomitant]
     Dosage: 100 TO 300 MG, FLUCTUATING
     Route: 048
     Dates: start: 20020320
  16. LEVOTHYROXINE [Concomitant]
     Indication: HYPOTHYROIDISM
     Dosage: 0.1 MG TO 0.2 MG, FLUCTUATING
     Route: 048
     Dates: start: 19960721
  17. PREDNISONE [Concomitant]
     Dosage: 10 MG TO 30 MG, FLUCTUATING
     Route: 048
     Dates: start: 19990222
  18. METOPROLOL SUCCINATE [Concomitant]
     Dosage: 50 MG TO 100 MG, FLUCTUATING
     Route: 048
     Dates: start: 20011015

REACTIONS (6)
  - DIABETES MELLITUS [None]
  - DIABETIC NEUROPATHY [None]
  - HUNGER [None]
  - NEUROPATHY PERIPHERAL [None]
  - WEIGHT DECREASED [None]
  - WEIGHT INCREASED [None]
